FAERS Safety Report 7515264-5 (Version None)
Quarter: 2011Q2

REPORT INFORMATION
  Report Type: 
  Country: None (occurrence: None)
  Receive Date: 20110601
  Receipt Date: 20100524
  Transmission Date: 20111010
  Serious: No
  Sender: FDA-Public Use
  Company Number: US-PFIZER INC-2010065569

PATIENT
  Sex: Female
  Weight: 58.503 kg

DRUGS (3)
  1. PSYLLIUM [Suspect]
     Dosage: UNK
     Dates: start: 20100501
  2. MAGNESIUM SULFATE [Suspect]
     Dosage: UNK
     Dates: start: 20100501
  3. CHANTIX [Suspect]
     Indication: SMOKING CESSATION THERAPY
     Dosage: UNK
     Route: 048
     Dates: start: 20100501

REACTIONS (2)
  - FLATULENCE [None]
  - CONSTIPATION [None]
